FAERS Safety Report 16161589 (Version 1)
Quarter: 2019Q2

REPORT INFORMATION
  Report Type: Report from Study
  Country: DE (occurrence: DE)
  Receive Date: 20190405
  Receipt Date: 20190405
  Transmission Date: 20190711
  Serious: Yes (Death, Other)
  Sender: FDA-Public Use
  Company Number: DE-ACCORD-118613

PATIENT
  Sex: Female

DRUGS (4)
  1. FOLINIC ACID [Suspect]
     Active Substance: LEUCOVORIN
     Indication: GASTRIC CANCER
     Dosage: 500 MG/M^2
     Route: 042
  2. MITOMYCIN. [Suspect]
     Active Substance: MITOMYCIN
     Indication: GASTRIC CANCER
     Dosage: 7MG/M^2 8+36
     Route: 042
  3. FLUOROURACIL. [Suspect]
     Active Substance: FLUOROURACIL
     Indication: GASTRIC CANCER
     Dosage: 2000 MGM^2
     Route: 042
  4. CAELYX [Suspect]
     Active Substance: DOXORUBICIN HYDROCHLORIDE
     Indication: GASTRIC CANCER
     Dosage: 20MG/M^2D1-29
     Route: 042

REACTIONS (2)
  - Haemolytic uraemic syndrome [Fatal]
  - Disease progression [Fatal]
